FAERS Safety Report 6365108-2 (Version None)
Quarter: 2009Q3

REPORT INFORMATION
  Report Type: 
  Country: None (occurrence: None)
  Receive Date: 20090919
  Receipt Date: 20090804
  Transmission Date: 20100115
  Serious: No
  Sender: FDA-Public Use
  Company Number: US-ABBOTT-09P-163-0589792-00

PATIENT
  Sex: Female

DRUGS (3)
  1. HUMIRA [Suspect]
     Indication: PSORIASIS
     Route: 058
     Dates: start: 20090501, end: 20090728
  2. VERAPAMIL [Concomitant]
     Indication: HYPERTENSION
     Dosage: DAILY
  3. GEMFIBROZIL [Concomitant]
     Indication: BLOOD CHOLESTEROL INCREASED
     Dosage: DAILY

REACTIONS (2)
  - DRUG DOSE OMISSION [None]
  - PSORIASIS [None]
